FAERS Safety Report 12142898 (Version 2)
Quarter: 2016Q2

REPORT INFORMATION
  Report Type: Spontaneous
  Country: TR (occurrence: TR)
  Receive Date: 20160303
  Receipt Date: 20160403
  Transmission Date: 20160815
  Serious: Yes (Other)
  Sender: FDA-Public Use
  Company Number: PHHY2016TR027886

PATIENT
  Age: 32 Year
  Sex: Female

DRUGS (1)
  1. TEGRETOL [Suspect]
     Active Substance: CARBAMAZEPINE
     Indication: HEADACHE
     Dosage: 200 MG, BID (HALF TABLET IN THE MORNING AND HALF TABLET IN THE EVENING) FOR APPROX. 12 TO 13 DAYS
     Route: 048
     Dates: end: 20160301

REACTIONS (4)
  - Infection [Recovered/Resolved]
  - Lymphadenopathy [Recovered/Resolved]
  - Gingival oedema [Recovered/Resolved]
  - Product use issue [Unknown]
